FAERS Safety Report 6186491-7 (Version None)
Quarter: 2009Q2

REPORT INFORMATION
  Report Type: 
  Country: None (occurrence: None)
  Receive Date: 20090512
  Receipt Date: 20090330
  Transmission Date: 20091009
  Serious: Yes (Hospitalization)
  Sender: FDA-Public Use
  Company Number: US-RB-015294-09

PATIENT
  Age: 25 Year
  Sex: Male

DRUGS (1)
  1. MUCINEX DM [Suspect]
     Dosage: GRADUALLY INCREASED DOSAGE UNTIL PATIENT WAS TAKING ONE BOTTLE PER DAY
     Route: 048

REACTIONS (2)
  - ACUTE PSYCHOSIS [None]
  - OVERDOSE [None]
